FAERS Safety Report 13350248 (Version 4)
Quarter: 2017Q3

REPORT INFORMATION
  Report Type: Spontaneous
  Country: KR (occurrence: KR)
  Receive Date: 20170320
  Receipt Date: 20170714
  Transmission Date: 20171127
  Serious: Yes (Hospitalization, Other)
  Sender: FDA-Public Use
  Company Number: KR-009507513-1703KOR007081

PATIENT
  Age: 59 Year
  Sex: Female
  Weight: 63.4 kg

DRUGS (42)
  1. GASTER [Concomitant]
     Active Substance: FAMOTIDINE
     Dosage: 20 MG (1 TABLET), BID
     Route: 048
     Dates: start: 20170308, end: 20170308
  2. ALIMTA [Concomitant]
     Active Substance: PEMETREXED DISODIUM
     Dosage: 795 MG, ONCE, CYCLE 3
     Route: 042
     Dates: start: 20170215, end: 20170215
  3. MANNITOL. [Concomitant]
     Active Substance: MANNITOL
     Dosage: 100 ML, ONCE; STRENGTH: 15% 100 ML
     Route: 042
     Dates: start: 20170308, end: 20170308
  4. SUSPEN ER [Concomitant]
     Indication: CANCER PAIN
     Dosage: 650 MG (1 TABLET), QD
     Route: 048
     Dates: start: 20170103
  5. GASTER [Concomitant]
     Active Substance: FAMOTIDINE
     Indication: PROPHYLAXIS
     Dosage: 20 MG (1 TABLET), BID
     Route: 048
     Dates: start: 20170125, end: 20170127
  6. ANYCOUGH [Concomitant]
     Active Substance: THEOBROMINE
     Indication: PROPHYLAXIS
     Dosage: 300 MG (1 CAPSULE), BID
     Route: 048
     Dates: start: 20170125, end: 20170206
  7. MANNITOL. [Concomitant]
     Active Substance: MANNITOL
     Indication: PROPHYLAXIS
     Dosage: 100 ML, ONCE; STRENGTH: 15% 100 ML
     Route: 042
     Dates: start: 20170125, end: 20170125
  8. ALOXI [Concomitant]
     Active Substance: PALONOSETRON HYDROCHLORIDE
     Indication: PROPHYLAXIS OF NAUSEA AND VOMITING
     Dosage: 0.25 MG, ONCE
     Route: 042
     Dates: start: 20170125, end: 20170125
  9. FOLIC ACID. [Concomitant]
     Active Substance: FOLIC ACID
     Indication: ANAEMIA PROPHYLAXIS
     Dosage: 1 MG (1 TABLET), DAILY
     Route: 048
     Dates: start: 20161220
  10. ACTONEL [Concomitant]
     Active Substance: RISEDRONATE SODIUM
     Indication: OSTEOPOROSIS PROPHYLAXIS
     Dosage: 35 MG (1 TABLET), QD
     Route: 048
     Dates: start: 20170125, end: 20170206
  11. CAVID [Concomitant]
     Indication: CALCIUM DEFICIENCY
     Dosage: 1250 MG, QD
     Route: 048
     Dates: start: 20170125, end: 20170205
  12. EMEND (FOSAPREPITANT DIMEGLUMINE) [Suspect]
     Active Substance: FOSAPREPITANT DIMEGLUMINE
     Indication: PROPHYLAXIS OF NAUSEA AND VOMITING
     Dosage: 150 MG, ONCE
     Route: 042
     Dates: start: 20170103, end: 20170103
  13. DEXAMETHASONE. [Concomitant]
     Active Substance: DEXAMETHASONE
     Indication: PROPHYLAXIS OF NAUSEA AND VOMITING
     Dosage: 8 MG, BID
     Route: 048
     Dates: start: 20170125, end: 20170127
  14. CEFTRIAXONE SODIUM. [Concomitant]
     Active Substance: CEFTRIAXONE SODIUM
     Indication: INFECTION PROPHYLAXIS
     Dosage: 2 G, QD
     Route: 042
     Dates: start: 20161222, end: 20170301
  15. DEXAMETHASONE. [Concomitant]
     Active Substance: DEXAMETHASONE
     Dosage: 8 MG, BID
     Route: 048
     Dates: start: 20170308, end: 20170308
  16. CISPLATIN. [Concomitant]
     Active Substance: CISPLATIN
     Indication: LUNG NEOPLASM MALIGNANT
     Dosage: 95 MG, ONCE, CYCLE 2; STRENGTH: 50MG/100ML
     Route: 042
     Dates: start: 20170125, end: 20170125
  17. LYRICA [Concomitant]
     Active Substance: PREGABALIN
     Indication: PROPHYLAXIS
     Dosage: 300 MG (1 CAPSULE), BID
     Route: 048
     Dates: start: 20161220
  18. ACTONEL [Concomitant]
     Active Substance: RISEDRONATE SODIUM
     Dosage: 35 MG (1 TABLET), ONCE
     Route: 048
     Dates: start: 20170215, end: 20170215
  19. ALIMTA [Concomitant]
     Active Substance: PEMETREXED DISODIUM
     Dosage: 795 MG, ONCE, CYCLE 4
     Route: 042
     Dates: start: 20170308, end: 20170308
  20. CISPLATIN. [Concomitant]
     Active Substance: CISPLATIN
     Dosage: 95 MG, ONCE, CYCLE 3; STRENGTH: 50MG/100ML
     Route: 042
     Dates: start: 20170215, end: 20170215
  21. CISPLATIN. [Concomitant]
     Active Substance: CISPLATIN
     Dosage: 95 MG, ONCE, CYCLE 4; STRENGTH: 50MG/100ML
     Route: 042
     Dates: start: 20170308, end: 20170308
  22. ALOXI [Concomitant]
     Active Substance: PALONOSETRON HYDROCHLORIDE
     Dosage: 0.25 MG, ONCE
     Route: 042
     Dates: start: 20170215, end: 20170215
  23. ALOXI [Concomitant]
     Active Substance: PALONOSETRON HYDROCHLORIDE
     Dosage: 0.25 MG, ONCE
     Route: 042
     Dates: start: 20170308, end: 20170308
  24. TARGIN [Concomitant]
     Active Substance: NALOXONE HYDROCHLORIDE\OXYCODONE HYDROCHLORIDE
     Indication: CANCER PAIN
     Dosage: 20/10 MG (1 TABLET), BID
     Route: 048
     Dates: start: 20161220
  25. ACTONEL [Concomitant]
     Active Substance: RISEDRONATE SODIUM
     Dosage: 35 MG (1 TABLET), QD
     Route: 048
     Dates: start: 20170222, end: 20170308
  26. ANYCOUGH [Concomitant]
     Active Substance: THEOBROMINE
     Dosage: 300 MG (1 CAPSULE), BID
     Route: 048
     Dates: start: 20170308
  27. APETROL (MEGESTROL ACETATE) [Concomitant]
     Indication: PROPHYLAXIS
     Dosage: 650 MG, QD
     Route: 048
     Dates: start: 20170126, end: 20170206
  28. SURFOLASE [Concomitant]
     Indication: PROPHYLAXIS
     Dosage: 1 CAPSULE, BID
     Dates: start: 20170125, end: 20170125
  29. SURFOLASE [Concomitant]
     Dosage: 1 CAPSULE, BID
     Route: 048
     Dates: start: 20170308, end: 20170308
  30. MANNITOL. [Concomitant]
     Active Substance: MANNITOL
     Dosage: 100 ML, ONCE; STRENGTH: 15% 100 ML
     Route: 042
     Dates: start: 20170215, end: 20170215
  31. EMEND (FOSAPREPITANT DIMEGLUMINE) [Suspect]
     Active Substance: FOSAPREPITANT DIMEGLUMINE
     Dosage: 150 MG, ONCE
     Route: 042
     Dates: start: 20170125, end: 20170125
  32. EMEND (FOSAPREPITANT DIMEGLUMINE) [Suspect]
     Active Substance: FOSAPREPITANT DIMEGLUMINE
     Dosage: 150 MG, ONCE
     Route: 042
     Dates: start: 20170308, end: 20170308
  33. DEXAMETHASONE. [Concomitant]
     Active Substance: DEXAMETHASONE
     Dosage: 8 MG, BID
     Route: 048
     Dates: start: 20170215, end: 20170215
  34. GASTER [Concomitant]
     Active Substance: FAMOTIDINE
     Dosage: 20 MG (1 TABLET), BID
     Route: 048
     Dates: start: 20170215, end: 20170216
  35. CAVID [Concomitant]
     Dosage: 1250 MG, QD
     Route: 048
     Dates: start: 20170222
  36. SURFOLASE [Concomitant]
     Dosage: 1 CAPSULE,BID
     Route: 048
     Dates: start: 20170202, end: 20170206
  37. EMEND (FOSAPREPITANT DIMEGLUMINE) [Suspect]
     Active Substance: FOSAPREPITANT DIMEGLUMINE
     Dosage: 150 MG, ONCE
     Route: 042
     Dates: start: 20170215, end: 20170215
  38. DEXAMETHASONE. [Concomitant]
     Active Substance: DEXAMETHASONE
     Dosage: 8 MG, ONCE
     Route: 048
     Dates: start: 20170216, end: 20170216
  39. DEXAMETHASONE. [Concomitant]
     Active Substance: DEXAMETHASONE
     Dosage: 8 MG, ONCE
     Route: 048
     Dates: start: 20170309, end: 20170309
  40. GASTER [Concomitant]
     Active Substance: FAMOTIDINE
     Dosage: 20 MG (1 TABLET), BID
     Route: 048
     Dates: start: 20170204, end: 20170207
  41. ALIMTA [Concomitant]
     Active Substance: PEMETREXED DISODIUM
     Indication: LUNG NEOPLASM MALIGNANT
     Dosage: 795 MG, ONCE, CYCLE 2
     Route: 042
     Dates: start: 20170125, end: 20170125
  42. APETROL (MEGESTROL ACETATE) [Concomitant]
     Dosage: 650 MG, QD
     Route: 048
     Dates: start: 20170216, end: 20170222

REACTIONS (2)
  - Musculoskeletal chest pain [Recovered/Resolved]
  - Deep vein thrombosis [Not Recovered/Not Resolved]

NARRATIVE: CASE EVENT DATE: 20170202
